FAERS Safety Report 8213160-1 (Version None)
Quarter: 2012Q1

REPORT INFORMATION
  Report Type: 
  Country: None (occurrence: None)
  Receive Date: 20120228
  Receipt Date: 20110608
  Transmission Date: 20120608
  Serious: Yes (Hospitalization, Other)
  Sender: FDA-Public Use
  Company Number: RB-28266-2011

PATIENT
  Age: 46 Year
  Sex: Female

DRUGS (7)
  1. SUBOXONE [Suspect]
     Indication: DRUG DEPENDENCE
     Dosage: (8 MG QD SUBLINGUAL FILM SUBLINGUAL)
     Route: 060
     Dates: start: 20110301, end: 20110320
  2. TRAZODONE 100 MG (NONE) [Suspect]
     Indication: DEPRESSION
     Dosage: (100 MG QD ORAL)
     Route: 048
     Dates: start: 20110604
  3. SUBOXONE [Suspect]
     Indication: DRUG DEPENDENCE
     Dosage: (8 MG QD SUBLINGUAL),  (4 MG BID SUBLINGUAL)
     Route: 060
     Dates: start: 20100701, end: 20110301
  4. SUBOXONE [Suspect]
     Indication: DRUG DEPENDENCE
     Dosage: (8 MG QD SUBLINGUAL),  (4 MG BID SUBLINGUAL)
     Route: 060
     Dates: start: 20110531
  5. TRILEPTAL [Suspect]
     Indication: DRUG WITHDRAWAL SYNDROME
     Dosage: (600 MG QD ORAL)
     Route: 048
     Dates: start: 20110601
  6. XANAX [Suspect]
     Indication: ANXIETY
     Dosage: ( ORAL)
     Route: 048
     Dates: end: 20110531
  7. ALCOHOL (NOT SPECIFIED) [Suspect]
     Indication: PRODUCT USED FOR UNKNOWN INDICATION
     Dosage: (ORAL)
     Route: 048
     Dates: start: 20101201, end: 20110531

REACTIONS (4)
  - DRUG WITHDRAWAL SYNDROME [None]
  - OEDEMA PERIPHERAL [None]
  - DRUG ABUSE [None]
  - LOCAL SWELLING [None]
